FAERS Safety Report 6256826-5 (Version None)
Quarter: 2009Q3

REPORT INFORMATION
  Report Type: 
  Country: None (occurrence: None)
  Receive Date: 20090706
  Receipt Date: 20090623
  Transmission Date: 20100115
  Serious: Yes (Hospitalization, Other)
  Sender: FDA-Public Use
  Company Number: PHHY2009IT25224

PATIENT
  Age: 41 Year
  Sex: Male

DRUGS (4)
  1. CICLOSPORIN [Suspect]
     Indication: RENAL TRANSPLANT
  2. METHYLPREDNISOLONE [Concomitant]
     Indication: IMMUNOSUPPRESSION
  3. AZATHIOPRINE [Concomitant]
     Indication: RENAL TRANSPLANT
  4. PREDNISOLONE [Concomitant]
     Indication: RENAL TRANSPLANT

REACTIONS (16)
  - ABDOMINAL PAIN LOWER [None]
  - BENIGN PROSTATIC HYPERPLASIA [None]
  - BLADDER CATHETERISATION [None]
  - BLADDER DILATATION [None]
  - HYDRONEPHROSIS [None]
  - INGUINAL HERNIA [None]
  - INGUINAL HERNIA REPAIR [None]
  - NEPHROSTOMY TUBE PLACEMENT [None]
  - NOCTURIA [None]
  - OLIGURIA [None]
  - RENAL FAILURE ACUTE [None]
  - SCROTAL PAIN [None]
  - TRANSURETHRAL PROSTATECTOMY [None]
  - URETERAL STENT INSERTION [None]
  - URETERAL STENT REMOVAL [None]
  - URETERIC STENOSIS [None]
